FAERS Safety Report 18380503 (Version 1)
Quarter: 2020Q4

REPORT INFORMATION
  Report Type: Spontaneous
  Country: US (occurrence: US)
  Receive Date: 20201013
  Receipt Date: 20201013
  Transmission Date: 20210114
  Serious: Yes (Hospitalization, Other)
  Sender: FDA-Public Use
  Company Number: US-ROCHE-2691987

PATIENT
  Age: 61 Year
  Sex: Female
  Weight: 125 kg

DRUGS (32)
  1. ASPIRINE [Concomitant]
     Active Substance: ASPIRIN
  2. OMEPRAZOLE. [Concomitant]
     Active Substance: OMEPRAZOLE
  3. K-DUR [Concomitant]
     Active Substance: POTASSIUM CHLORIDE
  4. VITAMIN B6 [Concomitant]
     Active Substance: PYRIDOXINE HYDROCHLORIDE
  5. HEPARIN [Concomitant]
     Active Substance: HEPARIN SODIUM
  6. REMODULIN [Suspect]
     Active Substance: TREPROSTINIL
     Indication: PULMONARY ARTERIAL HYPERTENSION
     Dosage: ONGOING : YES?REMODULIN SQ
     Route: 058
  7. ADVAIR HFA [Concomitant]
     Active Substance: FLUTICASONE PROPIONATE\SALMETEROL XINAFOATE
  8. ATORVASTATIN [Concomitant]
     Active Substance: ATORVASTATIN
  9. LIDODERM [Concomitant]
     Active Substance: LIDOCAINE
  10. DEMADEX [Concomitant]
     Active Substance: TORSEMIDE
  11. PANTOPRAZOLE [Concomitant]
     Active Substance: PANTOPRAZOLE
  12. RITUXAN [Suspect]
     Active Substance: RITUXIMAB
     Indication: PRODUCT USED FOR UNKNOWN INDICATION
     Route: 065
  13. KLONOPIN [Suspect]
     Active Substance: CLONAZEPAM
     Indication: PRODUCT USED FOR UNKNOWN INDICATION
     Dosage: QHS (EVERY NIGHT AT BEDTIME)
     Route: 048
  14. FLONASE [Concomitant]
     Active Substance: FLUTICASONE PROPIONATE
  15. OXYBUTYNIN. [Concomitant]
     Active Substance: OXYBUTYNIN CHLORIDE
  16. VITAMIN D3 [Concomitant]
     Active Substance: CHOLECALCIFEROL
  17. TYLENOL [Concomitant]
     Active Substance: ACETAMINOPHEN
  18. SILDENAFIL. [Concomitant]
     Active Substance: SILDENAFIL
  19. ACETAMINOPHEN. [Concomitant]
     Active Substance: ACETAMINOPHEN
  20. ONDANSETRON [Concomitant]
     Active Substance: ONDANSETRON
  21. COREG [Concomitant]
     Active Substance: CARVEDILOL
  22. FERROUS SULFATE. [Concomitant]
     Active Substance: FERROUS SULFATE
  23. ANTIVERT [Concomitant]
     Active Substance: MECLIZINE HYDROCHLORIDE
  24. TORASEMIDE [Concomitant]
     Active Substance: TORSEMIDE
  25. FERGON [Concomitant]
     Active Substance: FERROUS GLUCONATE
  26. VITAMIN C [Concomitant]
     Active Substance: ASCORBIC ACID
  27. WELLBUTRIN [Concomitant]
     Active Substance: BUPROPION HYDROCHLORIDE
  28. OPSUMIT [Concomitant]
     Active Substance: MACITENTAN
  29. ZOLOFT [Concomitant]
     Active Substance: SERTRALINE HYDROCHLORIDE
  30. FERROUS SULFATE. [Concomitant]
     Active Substance: FERROUS SULFATE
  31. BENICAR [Concomitant]
     Active Substance: OLMESARTAN MEDOXOMIL
  32. MORPHINE [Concomitant]
     Active Substance: MORPHINE

REACTIONS (15)
  - Abdominal hernia obstructive [Recovered/Resolved]
  - Diarrhoea [Unknown]
  - Small intestinal obstruction [Recovered/Resolved]
  - Clostridium difficile colitis [Recovered/Resolved]
  - Acute kidney injury [Recovering/Resolving]
  - Lethargy [Unknown]
  - Dizziness [Unknown]
  - Dyspnoea exertional [Unknown]
  - Abdominal hernia [Unknown]
  - Orthostatic hypotension [Unknown]
  - Atrial tachycardia [Unknown]
  - Vertigo [Not Recovered/Not Resolved]
  - Withdrawal syndrome [Unknown]
  - Insomnia [Unknown]
  - Pyuria [Unknown]

NARRATIVE: CASE EVENT DATE: 20200828
